FAERS Safety Report 7608938-9 (Version None)
Quarter: 2011Q3

REPORT INFORMATION
  Report Type: 
  Country: None (occurrence: None)
  Receive Date: 20110714
  Receipt Date: 20110617
  Transmission Date: 20111222
  Serious: Yes (Other)
  Sender: FDA-Public Use
  Company Number: US-GLAXOSMITHKLINE-A0932064A

PATIENT
  Sex: Male

DRUGS (3)
  1. VIAGRA [Suspect]
     Indication: ERECTILE DYSFUNCTION
     Dosage: 100MG AS REQUIRED
     Route: 048
     Dates: end: 20080101
  2. CIALIS [Suspect]
     Indication: PRODUCT USED FOR UNKNOWN INDICATION
     Route: 065
  3. WELLBUTRIN [Suspect]
     Indication: PRODUCT USED FOR UNKNOWN INDICATION
     Route: 048

REACTIONS (10)
  - SPINAL DISORDER [None]
  - OPEN WOUND [None]
  - WOUND HAEMORRHAGE [None]
  - ROAD TRAFFIC ACCIDENT [None]
  - BACK INJURY [None]
  - BONE DISORDER [None]
  - DRUG INEFFECTIVE [None]
  - INTERVERTEBRAL DISC INJURY [None]
  - ANGIOPATHY [None]
  - FALL [None]
